FAERS Safety Report 14295663 (Version 2)
Quarter: 2017Q4

REPORT INFORMATION
  Report Type: Spontaneous
  Country: CH (occurrence: CH)
  Receive Date: 20171218
  Receipt Date: 20171229
  Transmission Date: 20180321
  Serious: Yes (Death, Other)
  Sender: FDA-Public Use
  Company Number: CH-009507513-1712CHE007198

PATIENT
  Sex: Female

DRUGS (1)
  1. KEYTRUDA [Suspect]
     Active Substance: PEMBROLIZUMAB
     Indication: LUNG NEOPLASM MALIGNANT
     Dosage: DOSE: 2 CYCLES
     Dates: start: 2017, end: 2017

REACTIONS (1)
  - Death [Fatal]

NARRATIVE: CASE EVENT DATE: 2017
